FAERS Safety Report 17460685 (Version 1)
Quarter: 2020Q1

REPORT INFORMATION
  Report Type: Spontaneous
  Country: US (occurrence: US)
  Receive Date: 20200226
  Receipt Date: 20200226
  Transmission Date: 20200409
  Serious: Yes (Hospitalization)
  Sender: FDA-Public Use
  Company Number: US-009507513-2002USA007584

PATIENT
  Age: 34 Year
  Sex: Male
  Weight: 76.2 kg

DRUGS (9)
  1. ACYCLOVIR. [Concomitant]
     Active Substance: ACYCLOVIR
     Dosage: 400 MILLIGRAM, BID
     Route: 048
     Dates: start: 20190322, end: 20191114
  2. MUCINEX [Concomitant]
     Active Substance: GUAIFENESIN
     Dosage: 1 DOSAGE FORM, Q12H
     Route: 048
     Dates: start: 20190322, end: 20190530
  3. IBUPROFEN. [Concomitant]
     Active Substance: IBUPROFEN
     Dosage: 400 MILLIGRAM, Q6H PRN
     Route: 048
     Dates: start: 20190505, end: 20190523
  4. LIDOCAINE. [Concomitant]
     Active Substance: LIDOCAINE
     Dosage: 10 MILLILITER, 4X DAILY PRN
     Dates: start: 20190408, end: 20191114
  5. LEVOTHYROXINE SODIUM. [Concomitant]
     Active Substance: LEVOTHYROXINE SODIUM
     Dosage: 137 MORAL EVERY MORNING
     Route: 048
     Dates: start: 20190228, end: 20191114
  6. BENZONATATE. [Concomitant]
     Active Substance: BENZONATATE
     Dosage: 100 MILLIGRAM, TID
     Route: 048
     Dates: start: 20190301, end: 20190530
  7. KEYTRUDA [Suspect]
     Active Substance: PEMBROLIZUMAB
     Indication: DIFFUSE LARGE B-CELL LYMPHOMA
     Dosage: 200 MILLIGRAM, Q3W
     Route: 042
     Dates: start: 20181116, end: 20190411
  8. ALBUTEROL. [Concomitant]
     Active Substance: ALBUTEROL
     Dosage: 2 PUFFS INHALATION Q6H PRN
  9. OXYCODONE [Concomitant]
     Active Substance: OXYCODONE
     Dosage: 5-10 MG,PRN
     Route: 048
     Dates: start: 20190510, end: 20190523

REACTIONS (3)
  - Mucosal inflammation [Unknown]
  - Upper respiratory tract infection [Unknown]
  - Rash papular [Recovering/Resolving]

NARRATIVE: CASE EVENT DATE: 2019
